FAERS Safety Report 18982000 (Version 1)
Quarter: 2021Q1

REPORT INFORMATION
  Report Type: Spontaneous
  Country: IT (occurrence: IT)
  Receive Date: 20210308
  Receipt Date: 20210308
  Transmission Date: 20210420
  Serious: Yes (Other)
  Sender: FDA-Public Use
  Company Number: IT-TAKEDA-2021TUS012237

PATIENT

DRUGS (4)
  1. PREDNISONE. [Suspect]
     Active Substance: PREDNISONE
     Indication: MULTIFOCAL MOTOR NEUROPATHY
     Dosage: UNK
     Route: 048
  2. RITUXIMAB. [Suspect]
     Active Substance: RITUXIMAB
     Indication: MULTIFOCAL MOTOR NEUROPATHY
     Dosage: UNK
     Route: 065
  3. METHYLPREDNISOLONE. [Suspect]
     Active Substance: METHYLPREDNISOLONE
     Indication: MULTIFOCAL MOTOR NEUROPATHY
     Dosage: UNK
     Route: 042
  4. HUMAN NORMAL IMMUNOGLOBULIN [Suspect]
     Active Substance: HUMAN IMMUNOGLOBULIN G
     Indication: MULTIFOCAL MOTOR NEUROPATHY
     Dosage: UNK
     Route: 042

REACTIONS (5)
  - Treatment failure [Unknown]
  - Bulbar palsy [Unknown]
  - Diplegia [Unknown]
  - Off label use [Unknown]
  - Quadriplegia [Unknown]
